FAERS Safety Report 18458996 (Version 1)
Quarter: 2020Q4

REPORT INFORMATION
  Report Type: Report from Study
  Country: US (occurrence: US)
  Receive Date: 20201103
  Receipt Date: 20201103
  Transmission Date: 20210114
  Serious: Yes (Death, Life-Threatening, Hospitalization, Other)
  Sender: FDA-Public Use
  Company Number: US-MYLANLABS-2020M1090886

PATIENT
  Age: 75 Year
  Sex: Male
  Weight: 77.9 kg

DRUGS (54)
  1. VIMPAT [Concomitant]
     Active Substance: LACOSAMIDE
     Indication: SEIZURE PROPHYLAXIS
     Dosage: UNK
     Dates: start: 20200513
  2. CYCLOPHOSPHAMIDE. [Suspect]
     Active Substance: CYCLOPHOSPHAMIDE
     Dosage: DAY 4, 5, 7
     Route: 042
     Dates: start: 202002
  3. DOXORUBICIN [Concomitant]
     Active Substance: DOXORUBICIN
     Dosage: D1-3
     Dates: start: 20200416
  4. BORTEZOMIB. [Concomitant]
     Active Substance: BORTEZOMIB
     Dosage: DAYS 1, 4, 10, 14
     Route: 065
     Dates: start: 201901
  5. BORTEZOMIB. [Concomitant]
     Active Substance: BORTEZOMIB
     Dosage: DAY 1, 4
     Route: 065
     Dates: start: 201909
  6. CYCLOPHOSPHAMIDE. [Suspect]
     Active Substance: CYCLOPHOSPHAMIDE
     Indication: PLASMA CELL MYELOMA
     Dosage: UNK
     Route: 042
     Dates: start: 201706, end: 201707
  7. CYCLOPHOSPHAMIDE. [Suspect]
     Active Substance: CYCLOPHOSPHAMIDE
     Dosage: 588 MILLIGRAM 1 IN 1 D
     Route: 042
     Dates: start: 20200507, end: 20200509
  8. CISPLATIN. [Concomitant]
     Active Substance: CISPLATIN
     Indication: PLASMA CELL MYELOMA
     Dosage: D1-4
     Dates: start: 20200416
  9. DOXORUBICIN [Concomitant]
     Active Substance: DOXORUBICIN
     Dosage: DAYS 1-4
     Dates: start: 201901
  10. DOXORUBICIN [Concomitant]
     Active Substance: DOXORUBICIN
     Dosage: DAYS 1-4
     Dates: start: 201902
  11. DEXAMETHASONE. [Concomitant]
     Active Substance: DEXAMETHASONE
     Dosage: DAYS 1-4,8,15,16,
     Route: 065
     Dates: start: 201912
  12. DEXAMETHASONE. [Concomitant]
     Active Substance: DEXAMETHASONE
     Dosage: DAYS 1-4,8,15,16,
     Route: 065
     Dates: start: 202002
  13. THALIDOMIDE [Concomitant]
     Active Substance: THALIDOMIDE
     Dosage: DAY 1-21
     Route: 048
     Dates: start: 201912
  14. PIPERACILLIN/TAZOBACTAM [Concomitant]
     Active Substance: PIPERACILLIN SODIUM\TAZOBACTAM SODIUM
     Indication: PYREXIA
     Dosage: UNK
     Dates: start: 20200512, end: 20200512
  15. ETOPOSIDE. [Concomitant]
     Active Substance: ETOPOSIDE
     Dosage: DAYS 4-7
     Dates: start: 201912
  16. DOXORUBICIN [Concomitant]
     Active Substance: DOXORUBICIN
     Dosage: DAYS 1-4
     Dates: start: 201909
  17. DEXAMETHASONE. [Concomitant]
     Active Substance: DEXAMETHASONE
     Dosage: 60 MILLIGRAM 1 IN 8 HR
     Route: 065
     Dates: start: 20200518, end: 20200518
  18. DEXAMETHASONE. [Concomitant]
     Active Substance: DEXAMETHASONE
     Dosage: D1-4
     Route: 065
     Dates: start: 20200416
  19. BORTEZOMIB. [Concomitant]
     Active Substance: BORTEZOMIB
     Dosage: DAYS 1 AND 6
     Route: 065
     Dates: start: 201811
  20. THALIDOMIDE [Concomitant]
     Active Substance: THALIDOMIDE
     Dosage: DAY 1-21
     Route: 048
     Dates: start: 202002
  21. THALIDOMIDE [Concomitant]
     Active Substance: THALIDOMIDE
     Dosage: D1-5
     Dates: start: 20200416
  22. CYCLOPHOSPHAMIDE. [Suspect]
     Active Substance: CYCLOPHOSPHAMIDE
     Dosage: ONCE
     Route: 042
     Dates: start: 20200519, end: 20200519
  23. NOXAFIL [Concomitant]
     Active Substance: POSACONAZOLE
     Indication: PROPHYLAXIS
     Dosage: UNK
  24. RASBURICASE [Concomitant]
     Active Substance: RASBURICASE
     Indication: PROPHYLAXIS
     Dosage: UNK
  25. DEXAMETHASONE. [Concomitant]
     Active Substance: DEXAMETHASONE
     Dosage: UNK
     Route: 065
     Dates: start: 201706, end: 201707
  26. DEXAMETHASONE. [Concomitant]
     Active Substance: DEXAMETHASONE
     Dosage: DAYS 1-4,7,15,16
     Route: 065
     Dates: start: 201911
  27. BORTEZOMIB. [Concomitant]
     Active Substance: BORTEZOMIB
     Dosage: D1, 4
     Route: 065
     Dates: start: 20200416
  28. CYCLOPHOSPHAMIDE. [Suspect]
     Active Substance: CYCLOPHOSPHAMIDE
     Dosage: D1-3
     Route: 042
     Dates: start: 20200416
  29. MEROPENEM. [Concomitant]
     Active Substance: MEROPENEM
     Indication: PROPHYLAXIS
     Dosage: UNK
     Dates: start: 20200517
  30. G-CSF [Concomitant]
     Active Substance: GRANULOCYTE COLONY-STIMULATING FACTOR NOS
     Indication: PRODUCT USED FOR UNKNOWN INDICATION
     Dosage: UNK
  31. DOXORUBICIN [Concomitant]
     Active Substance: DOXORUBICIN
     Dosage: DAYS 1-4
     Dates: start: 201907
  32. DEXAMETHASONE. [Concomitant]
     Active Substance: DEXAMETHASONE
     Dosage: DAYS 0, 1, 1, 4/5, 10/11, 14/15UNK
     Route: 065
     Dates: start: 201901
  33. BORTEZOMIB. [Concomitant]
     Active Substance: BORTEZOMIB
     Dosage: DAY 1, 4
     Route: 065
     Dates: start: 201903
  34. THALIDOMIDE [Concomitant]
     Active Substance: THALIDOMIDE
     Indication: PLASMA CELL MYELOMA
     Dosage: DAY 1-21
     Route: 048
     Dates: start: 201911
  35. ETOPOSIDE. [Concomitant]
     Active Substance: ETOPOSIDE
     Indication: PLASMA CELL MYELOMA
     Dosage: DAYS 4-7
     Dates: start: 201911
  36. ETOPOSIDE. [Concomitant]
     Active Substance: ETOPOSIDE
     Dosage: DAYS 4,5,7
     Dates: start: 202002
  37. DEXAMETHASONE. [Concomitant]
     Active Substance: DEXAMETHASONE
     Indication: PLASMA CELL MYELOMA
     Dosage: 30 MILLIGRAM, 1 IN 8 HR
     Route: 065
     Dates: start: 20200517, end: 20200517
  38. DEXAMETHASONE. [Concomitant]
     Active Substance: DEXAMETHASONE
     Dosage: DAYS 0, 1, 1, 4/5, 10/11, 14/15
     Route: 065
     Dates: start: 201902
  39. BORTEZOMIB. [Concomitant]
     Active Substance: BORTEZOMIB
     Indication: PLASMA CELL MYELOMA
     Dosage: UNK
     Route: 065
     Dates: start: 201706, end: 201707
  40. BORTEZOMIB. [Concomitant]
     Active Substance: BORTEZOMIB
     Dosage: D1, 8, 11,
     Route: 065
     Dates: start: 20200325
  41. BORTEZOMIB. [Concomitant]
     Active Substance: BORTEZOMIB
     Dosage: DAY 1, 4
     Route: 065
     Dates: start: 201907
  42. CYCLOPHOSPHAMIDE. [Suspect]
     Active Substance: CYCLOPHOSPHAMIDE
     Dosage: DAY4-7
     Route: 042
     Dates: start: 201911
  43. ETOPOSIDE. [Concomitant]
     Active Substance: ETOPOSIDE
     Dosage: D1-3, UNK
     Dates: start: 20200416
  44. DOXORUBICIN [Concomitant]
     Active Substance: DOXORUBICIN
     Indication: PLASMA CELL MYELOMA
     Dosage: DAY 3-6
     Dates: start: 201811
  45. DEXAMETHASONE. [Concomitant]
     Active Substance: DEXAMETHASONE
     Dosage: UNK
     Route: 065
     Dates: start: 20200513, end: 20200514
  46. DEXAMETHASONE. [Concomitant]
     Active Substance: DEXAMETHASONE
     Dosage: D1, 8
     Route: 065
     Dates: start: 20200325
  47. DEXAMETHASONE. [Concomitant]
     Active Substance: DEXAMETHASONE
     Dosage: DAYS 1-8
     Route: 065
     Dates: start: 201811
  48. DEXAMETHASONE. [Concomitant]
     Active Substance: DEXAMETHASONE
     Dosage: UNK
     Route: 065
     Dates: start: 20200512, end: 20200512
  49. FLUDARABINE PHOSPHATE INJECTION USP [Suspect]
     Active Substance: FLUDARABINE PHOSPHATE
     Indication: PLASMA CELL MYELOMA
     Dosage: 47.04 MILLIGRAM 1 IN 1 D
     Route: 042
     Dates: start: 20200507, end: 20200509
  50. CYCLOPHOSPHAMIDE. [Suspect]
     Active Substance: CYCLOPHOSPHAMIDE
     Dosage: DAY4-7
     Route: 042
     Dates: start: 201912
  51. LEVETIRACETAM. [Concomitant]
     Active Substance: LEVETIRACETAM
     Indication: PROPHYLAXIS
     Dosage: UNK
  52. SODIUM BICARBONATE. [Concomitant]
     Active Substance: SODIUM BICARBONATE
     Indication: PRODUCT USED FOR UNKNOWN INDICATION
     Dosage: UNK
  53. DOXORUBICIN [Concomitant]
     Active Substance: DOXORUBICIN
     Dosage: DAYS 1-4
     Dates: start: 201903
  54. BORTEZOMIB. [Concomitant]
     Active Substance: BORTEZOMIB
     Dosage: DAY 1, 4, 10, 14
     Route: 065
     Dates: start: 201902

REACTIONS (14)
  - Cytokine release syndrome [Fatal]
  - Haemophagocytic lymphohistiocytosis [Not Recovered/Not Resolved]
  - Tachycardia [Recovered/Resolved]
  - Pyrexia [Recovered/Resolved]
  - Serum ferritin increased [Not Recovered/Not Resolved]
  - Disturbance in attention [Recovered/Resolved]
  - Neurotoxicity [Not Recovered/Not Resolved]
  - Tachypnoea [Recovered/Resolved]
  - Somnolence [Unknown]
  - Disorientation [Unknown]
  - Apraxia [Unknown]
  - Candida sepsis [Fatal]
  - Tremor [Recovered/Resolved]
  - Hypoxia [Recovered/Resolved]

NARRATIVE: CASE EVENT DATE: 20200512
